FAERS Safety Report 8726229 (Version 2)
Quarter: 2012Q4

REPORT INFORMATION
  Report Type: 
  Country: BR (occurrence: BR)
  Receive Date: 20120816
  Receipt Date: 20121001
  Transmission Date: 20130627
  Serious: Yes (Other)
  Sender: FDA-Public Use
  Company Number: BR-AMGEN-BRASP2012016144

PATIENT
  Age: 51 Year
  Sex: Female
  Weight: 65 kg

DRUGS (6)
  1. ENBREL [Suspect]
     Indication: RHEUMATOID ARTHRITIS
     Dosage: 25 mg, 2x/week
     Route: 058
     Dates: start: 200809
  2. LOSARTAN [Concomitant]
     Indication: BLOOD PRESSURE
     Dosage: 50 mg, 1x/day
  3. METFORMIN HYDROCHLORIDE [Concomitant]
     Dosage: 100 mg, qd
  4. METFORMIN HYDROCHLORIDE [Concomitant]
     Dosage: UNK
  5. NIMESULIDE [Concomitant]
     Indication: PAIN
     Dosage: 100 mg, 1x/day
  6. NIMESULIDE [Concomitant]
     Dosage: 100 mg, 2x/day

REACTIONS (7)
  - Oedema peripheral [Unknown]
  - Bone pain [Unknown]
  - Diabetes mellitus inadequate control [Unknown]
  - Pain in extremity [Unknown]
  - Arthralgia [Unknown]
  - Vomiting [Recovered/Resolved]
  - Drug ineffective [Unknown]
